FAERS Safety Report 4967976-5 (Version None)
Quarter: 2006Q2

REPORT INFORMATION
  Report Type: 
  Country: None (occurrence: None)
  Receive Date: 20060410
  Receipt Date: 20051005
  Transmission Date: 20061013
  Serious: Yes (Hospitalization, Other)
  Sender: FDA-Public Use
  Company Number: US-MERCK-0510USA03869

PATIENT
  Age: 80 Year
  Sex: Male

DRUGS (4)
  1. VIOXX [Suspect]
     Indication: ARTHRALGIA
     Route: 048
     Dates: start: 20000301, end: 20000901
  2. VIOXX [Suspect]
     Route: 048
     Dates: start: 20010701, end: 20011201
  3. VIOXX [Suspect]
     Route: 048
     Dates: start: 20000301, end: 20000901
  4. VIOXX [Suspect]
     Route: 048
     Dates: start: 20010701, end: 20011201

REACTIONS (16)
  - ACTINIC KERATOSIS [None]
  - ACUTE MYOCARDIAL INFARCTION [None]
  - ANGINA PECTORIS [None]
  - ARTHROPATHY [None]
  - ASTHENIA [None]
  - BUNDLE BRANCH BLOCK [None]
  - BURSITIS [None]
  - CHEST PAIN [None]
  - CORONARY ARTERY OCCLUSION [None]
  - DIABETES MELLITUS NON-INSULIN-DEPENDENT [None]
  - HYPERLIPIDAEMIA [None]
  - HYPERTENSION [None]
  - KNEE ARTHROPLASTY [None]
  - MONARTHRITIS [None]
  - SPINAL COLUMN STENOSIS [None]
  - SPONDYLOLISTHESIS [None]
